FAERS Safety Report 23953079 (Version 1)
Quarter: 2024Q2

REPORT INFORMATION
  Report Type: Spontaneous
  Country: NL (occurrence: NL)
  Receive Date: 20240608
  Receipt Date: 20240608
  Transmission Date: 20240715
  Serious: Yes (Hospitalization)
  Sender: FDA-Public Use
  Company Number: NL-ABBVIE-5790143

PATIENT
  Age: 42 Year
  Sex: Male
  Weight: 65 kg

DRUGS (18)
  1. MEMANTINE [Suspect]
     Active Substance: MEMANTINE
     Indication: Schizoaffective disorder
     Route: 065
  2. CARBAMAZEPINE [Suspect]
     Active Substance: CARBAMAZEPINE
     Indication: Schizoaffective disorder
     Route: 065
  3. CARBAMAZEPINE [Suspect]
     Active Substance: CARBAMAZEPINE
     Indication: Schizoaffective disorder
     Route: 065
  4. CLOZAPINE [Suspect]
     Active Substance: CLOZAPINE
     Indication: Schizoaffective disorder
     Route: 065
     Dates: start: 2005
  5. CLOZAPINE [Suspect]
     Active Substance: CLOZAPINE
     Indication: Schizoaffective disorder
     Route: 065
  6. CLOZAPINE [Suspect]
     Active Substance: CLOZAPINE
     Indication: Schizoaffective disorder
     Route: 065
  7. CLOZAPINE [Suspect]
     Active Substance: CLOZAPINE
     Indication: Schizoaffective disorder
     Route: 065
  8. CLOZAPINE [Suspect]
     Active Substance: CLOZAPINE
     Indication: Schizoaffective disorder
     Route: 065
  9. FLUVOXAMINE MALEATE [Suspect]
     Active Substance: FLUVOXAMINE MALEATE
     Indication: Schizoaffective disorder
     Route: 065
  10. FLUVOXAMINE MALEATE [Suspect]
     Active Substance: FLUVOXAMINE MALEATE
     Indication: Schizoaffective disorder
     Dosage: 50 MILLIGRAM
     Route: 065
  11. HALOPERIDOL [Concomitant]
     Active Substance: HALOPERIDOL
     Indication: Schizoaffective disorder
     Route: 048
  12. HALOPERIDOL [Concomitant]
     Active Substance: HALOPERIDOL
     Indication: Schizoaffective disorder
     Dosage: LONG ACTING INJECTION
     Route: 042
  13. GLYCOPYRRONIUM [Concomitant]
     Active Substance: GLYCOPYRRONIUM
     Indication: Schizoaffective disorder
     Dosage: AT BEDTIME
     Route: 065
  14. ZUCLOPENTHIXOL [Concomitant]
     Active Substance: ZUCLOPENTHIXOL
     Indication: Schizoaffective disorder
     Dosage: LONG-ACTING INJECTION
     Route: 065
     Dates: start: 2019, end: 2020
  15. VALPROIC ACID [Concomitant]
     Active Substance: VALPROIC ACID
     Indication: Schizoaffective disorder
     Dosage: 2 GRAM
     Route: 065
     Dates: start: 202109
  16. LACTULOSE [Concomitant]
     Active Substance: LACTULOSE
     Indication: Schizoaffective disorder
     Route: 065
  17. LITHIUM CARBONATE [Concomitant]
     Active Substance: LITHIUM CARBONATE
     Indication: Schizoaffective disorder
     Dosage: AT BEDTIME
     Route: 065
     Dates: start: 2019, end: 202105
  18. METOCLOPRAMIDE [Concomitant]
     Active Substance: METOCLOPRAMIDE
     Indication: Schizoaffective disorder
     Route: 042

REACTIONS (3)
  - Ileus paralytic [Unknown]
  - Drug ineffective [Unknown]
  - Constipation [Unknown]
